FAERS Safety Report 20195510 (Version 6)
Quarter: 2022Q1

REPORT INFORMATION
  Report Type: Spontaneous
  Country: PL (occurrence: PL)
  Receive Date: 20211216
  Receipt Date: 20220128
  Transmission Date: 20220423
  Serious: Yes (Hospitalization, Other)
  Sender: FDA-Public Use
  Company Number: PL-NOVARTISPH-NVSC2021PL282336

PATIENT
  Age: 42 Year
  Sex: Female

DRUGS (17)
  1. CARBAMAZEPINE [Suspect]
     Active Substance: CARBAMAZEPINE
     Indication: Depression
     Dosage: DOSES UP TO 600 MG PER DAY
     Route: 065
     Dates: start: 2013
  2. CARBAMAZEPINE [Suspect]
     Active Substance: CARBAMAZEPINE
     Indication: Bipolar disorder
     Dosage: 600 MG, BID (2 TIMES 600 MG PER DAY)
     Route: 065
     Dates: start: 201707
  3. QUETIAPINE [Suspect]
     Active Substance: QUETIAPINE
     Indication: Depression
     Dosage: UP TO 600 MG, QD
     Route: 065
     Dates: start: 2015
  4. QUETIAPINE [Suspect]
     Active Substance: QUETIAPINE
     Indication: Bipolar disorder
     Dosage: UP TO 700 MG, QD
     Route: 065
     Dates: start: 201707
  5. QUETIAPINE [Suspect]
     Active Substance: QUETIAPINE
     Dosage: 100 MG, QD, IMMEDIATE RELEASE
     Route: 065
  6. QUETIAPINE [Suspect]
     Active Substance: QUETIAPINE
     Dosage: 400 MG, QD, EXTENDED RELEASE
     Route: 065
  7. QUETIAPINE [Suspect]
     Active Substance: QUETIAPINE
     Dosage: 500 MG, 1D (EXTENDED-RELEASE 400 MG PER DAY+100 MG IMMEDIATE-RELEASE)
     Route: 065
     Dates: start: 2017
  8. CITALOPRAM [Suspect]
     Active Substance: CITALOPRAM HYDROBROMIDE
     Indication: Depression
     Dosage: UP TO 20 MG, QD
     Route: 065
     Dates: start: 2015
  9. LAMOTRIGINE [Suspect]
     Active Substance: LAMOTRIGINE
     Indication: Depression
     Dosage: 600 MG, BID
     Route: 065
     Dates: start: 2013
  10. LAMOTRIGINE [Suspect]
     Active Substance: LAMOTRIGINE
     Indication: Bipolar disorder
     Dosage: 100 MG, BID (2 TIMES 100 MG PER DAY)
     Route: 065
     Dates: start: 201707
  11. LAMOTRIGINE [Suspect]
     Active Substance: LAMOTRIGINE
     Indication: Mental status changes
     Dosage: 200 MG, QD
     Route: 065
  12. OLANZAPINE [Suspect]
     Active Substance: OLANZAPINE
     Indication: Depression
     Dosage: 20 MG, Q24H (PER NIGHT)
     Route: 065
     Dates: start: 2013
  13. OLANZAPINE [Suspect]
     Active Substance: OLANZAPINE
     Indication: Bipolar disorder
  14. LITHIUM [Suspect]
     Active Substance: LITHIUM
     Indication: Bipolar disorder
     Dosage: INCREASED TO 1000 MG, QD
     Route: 065
     Dates: start: 2017
  15. LITHIUM [Suspect]
     Active Substance: LITHIUM
     Indication: Mental status changes
  16. PROPRANOLOL [Concomitant]
     Active Substance: PROPRANOLOL HYDROCHLORIDE
     Indication: Tremor
     Dosage: 10 MG, QD
     Route: 065
  17. MOMETASONE [Concomitant]
     Active Substance: MOMETASONE
     Indication: Psoriasis
     Dosage: UNK
     Route: 061

REACTIONS (3)
  - Mania [Unknown]
  - Depression [Unknown]
  - Drug ineffective [Unknown]
